FAERS Safety Report 17538326 (Version 1)
Quarter: 2020Q1

REPORT INFORMATION
  Report Type: Report from Study
  Country: CA (occurrence: CA)
  Receive Date: 20200313
  Receipt Date: 20200313
  Transmission Date: 20200409
  Serious: Yes (Other)
  Sender: FDA-Public Use
  Company Number: CA-ROCHE-2562689

PATIENT
  Sex: Female

DRUGS (1)
  1. OCREVUS [Suspect]
     Active Substance: OCRELIZUMAB
     Indication: RELAPSING-REMITTING MULTIPLE SCLEROSIS
     Dosage: THEN 600 MG EVERY 6
     Route: 042
     Dates: start: 20200212

REACTIONS (2)
  - Postoperative wound complication [Not Recovered/Not Resolved]
  - Postoperative wound infection [Not Recovered/Not Resolved]
